FAERS Safety Report 16943360 (Version 1)
Quarter: 2019Q4

REPORT INFORMATION
  Report Type: Spontaneous
  Country: US (occurrence: US)
  Receive Date: 20191022
  Receipt Date: 20191022
  Transmission Date: 20200122
  Serious: No
  Sender: FDA-Public Use
  Company Number: US-SHIRE-US201935606

PATIENT
  Sex: Female

DRUGS (2)
  1. XIIDRA [Suspect]
     Active Substance: LIFITEGRAST
     Indication: DRY EYE
     Dosage: 1 DROP, 2X/DAY:BID
     Route: 047
     Dates: start: 2018, end: 2018
  2. XIIDRA [Suspect]
     Active Substance: LIFITEGRAST
     Dosage: 1 DROP, 2X/DAY:BID
     Route: 047
     Dates: start: 2018, end: 2018

REACTIONS (3)
  - Eye disorder [Unknown]
  - Dry eye [Unknown]
  - Therapy cessation [Unknown]
